FAERS Safety Report 18288579 (Version 1)
Quarter: 2020Q3

REPORT INFORMATION
  Report Type: Spontaneous
  Country: US (occurrence: US)
  Receive Date: 20200921
  Receipt Date: 20200921
  Transmission Date: 20201103
  Serious: Yes (Hospitalization)
  Sender: FDA-Public Use
  Company Number: US-ELI_LILLY_AND_COMPANY-US202009005061

PATIENT
  Sex: Male

DRUGS (4)
  1. HUMALOG [Suspect]
     Active Substance: INSULIN LISPRO
     Dosage: UNK, UNKNOWN
     Route: 065
  2. HUMALOG [Suspect]
     Active Substance: INSULIN LISPRO
     Indication: PRODUCT USED FOR UNKNOWN INDICATION
     Dosage: UNK, UNKNOWN
     Route: 065
  3. HUMALOG [Suspect]
     Active Substance: INSULIN LISPRO
     Dosage: UNK, UNKNOWN
     Route: 065
  4. HUMALOG [Suspect]
     Active Substance: INSULIN LISPRO
     Indication: PRODUCT USED FOR UNKNOWN INDICATION
     Dosage: UNK, UNKNOWN
     Route: 065

REACTIONS (7)
  - Spinal fracture [Not Recovered/Not Resolved]
  - Wrong technique in product usage process [Recovered/Resolved]
  - Blood glucose increased [Recovered/Resolved]
  - Expired product administered [Recovered/Resolved]
  - Paraplegia [Not Recovered/Not Resolved]
  - Drug ineffective [Unknown]
  - Blood glucose increased [Unknown]

NARRATIVE: CASE EVENT DATE: 2015
